FAERS Safety Report 5502357-7 (Version None)
Quarter: 2007Q4

REPORT INFORMATION
  Report Type: 
  Country: None (occurrence: None)
  Receive Date: 20071030
  Receipt Date: 20071019
  Transmission Date: 20080405
  Serious: Yes (Other)
  Sender: FDA-Public Use
  Company Number: ES-PFIZER INC-2007062491

PATIENT
  Sex: Female

DRUGS (2)
  1. DETRUSITOL LA [Suspect]
     Indication: URINARY INCONTINENCE
     Route: 048
  2. PROGRAF [Concomitant]

REACTIONS (1)
  - DRUG ABUSER [None]
